FAERS Safety Report 4749581-9 (Version None)
Quarter: 2005Q3

REPORT INFORMATION
  Report Type: 
  Country: None (occurrence: None)
  Receive Date: 20050822
  Receipt Date: 20050727
  Transmission Date: 20060218
  Serious: Yes (Hospitalization)
  Sender: FDA-Public Use
  Company Number: 00205002243

PATIENT
  Age: 27 Year
  Sex: Female

DRUGS (8)
  1. EPIVIR [Suspect]
     Indication: ILL-DEFINED DISORDER
     Dosage: 1U PER DAY
     Route: 048
     Dates: start: 20020902
  2. COVERSYL [Suspect]
     Indication: ILL-DEFINED DISORDER
     Dosage: 2MG PER DAY
     Route: 048
     Dates: start: 20030101
  3. VIRACEPT [Suspect]
     Indication: ILL-DEFINED DISORDER
     Dosage: 1250MG TWICE PER DAY
     Route: 048
     Dates: start: 20020808
  4. SUSTIVA [Suspect]
     Indication: ILL-DEFINED DISORDER
     Dosage: 600MG PER DAY
     Route: 048
     Dates: start: 20020808
  5. LASIX [Suspect]
  6. NITRODERM [Concomitant]
     Indication: DRUG USE FOR UNKNOWN INDICATION
     Dates: start: 20050101
  7. UN-ALFA [Concomitant]
     Indication: DRUG USE FOR UNKNOWN INDICATION
  8. AMLODIPINE BESYLATE [Concomitant]
     Indication: DRUG USE FOR UNKNOWN INDICATION

REACTIONS (5)
  - MITRAL VALVE INCOMPETENCE [None]
  - MYOCARDITIS [None]
  - PLEURAL EFFUSION [None]
  - PULMONARY HYPERTENSION [None]
  - PULMONARY OEDEMA [None]
